FAERS Safety Report 24956644 (Version 1)
Quarter: 2025Q1

REPORT INFORMATION
  Report Type: Spontaneous
  Country: IL (occurrence: IL)
  Receive Date: 20250211
  Receipt Date: 20250211
  Transmission Date: 20250408
  Serious: Yes (Hospitalization)
  Sender: EISAI
  Company Number: IL-Eisai-EC-2025-183796

PATIENT
  Sex: Female

DRUGS (2)
  1. LENVATINIB [Suspect]
     Active Substance: LENVATINIB
     Indication: Endometrial cancer
  2. KEYTRUDA [Suspect]
     Active Substance: PEMBROLIZUMAB
     Indication: Endometrial cancer

REACTIONS (2)
  - Asthenia [Unknown]
  - Mucosal inflammation [Unknown]
